FAERS Safety Report 23443525 (Version 1)
Quarter: 2024Q1

REPORT INFORMATION
  Report Type: Report from Study
  Country: BE (occurrence: BE)
  Receive Date: 20240125
  Receipt Date: 20240125
  Transmission Date: 20240410
  Serious: Yes (Death)
  Sender: FDA-Public Use
  Company Number: BE-ABBVIE-5602686

PATIENT
  Age: 84 Year
  Sex: Female
  Weight: 47 kg

DRUGS (16)
  1. CARBIDOPA\LEVODOPA [Suspect]
     Active Substance: CARBIDOPA\LEVODOPA
     Indication: Parkinson^s disease
     Dosage: MD: 0.5 ML, CD: 1.6 ML/H, ED: 0.6 ML DURING 16 HOURS
     Route: 050
     Dates: start: 20230911, end: 20240113
  2. CARBIDOPA\LEVODOPA [Suspect]
     Active Substance: CARBIDOPA\LEVODOPA
     Route: 050
     Dates: start: 20170612
  3. EDOXABAN TOSYLATE [Concomitant]
     Active Substance: EDOXABAN TOSYLATE
     Indication: Product used for unknown indication
     Dosage: FORM STRENGTH: 30 , IN THE MORNING
  4. BENSERAZIDE\LEVODOPA [Concomitant]
     Active Substance: BENSERAZIDE\LEVODOPA
     Indication: Product used for unknown indication
     Dosage: 31.25 MG 2 TABLETS, FREQUENCY TEXT: 08.00, 10.00, 17.00
  5. BENSERAZIDE\LEVODOPA [Concomitant]
     Active Substance: BENSERAZIDE\LEVODOPA
     Indication: Product used for unknown indication
     Dosage: 31.25 MG 1 TABLET, FREQUENCY TEXT: 14.00
  6. FLUDROCORTISONE [Concomitant]
     Active Substance: FLUDROCORTISONE
     Indication: Product used for unknown indication
     Dosage: FORM STRENGTH: 100 , IN THE MORNING
  7. CORDARONE [Concomitant]
     Active Substance: AMIODARONE HYDROCHLORIDE
     Indication: Product used for unknown indication
     Dosage: FORM STRENGTH: 200 ,  IN THE MORNING
  8. CORDARONE [Concomitant]
     Active Substance: AMIODARONE HYDROCHLORIDE
     Indication: Product used for unknown indication
     Dosage: FORM STRENGTH: 200 ,  IN THE MORNING
  9. FOLIC ACID [Concomitant]
     Active Substance: FOLIC ACID
     Indication: Product used for unknown indication
     Dosage: FORM STRENGTH: 4 MG, IN THE MORNING
  10. BENSERAZIDE\LEVODOPA [Concomitant]
     Active Substance: BENSERAZIDE\LEVODOPA
     Indication: Product used for unknown indication
     Dosage: FORM STRENGTH: 125 , FREQUENCY TEXT: IN THE EVENING
  11. BISACODYL [Concomitant]
     Active Substance: BISACODYL
     Indication: Product used for unknown indication
     Dosage: TIME INTERVAL: 0.33333333 WEEKS: FORM STRENGTH: 5
  12. SERTRALINE [Concomitant]
     Active Substance: SERTRALINE HYDROCHLORIDE
     Indication: Product used for unknown indication
     Dosage: FORM STRENGTH: 50, FREQUENCY TEXT: IN THE MORNING
  13. Befact forte [Concomitant]
     Indication: Product used for unknown indication
     Dosage: FREQUENCY TEXT: IN THE MORNING
  14. TRAZODONE [Concomitant]
     Active Substance: TRAZODONE HYDROCHLORIDE
     Indication: Product used for unknown indication
     Dosage: FORM STRENGTH: 100, FREQUENCY TEXT: IN THE EVENING
  15. REQUIP [Concomitant]
     Active Substance: ROPINIROLE HYDROCHLORIDE
     Indication: Product used for unknown indication
     Dosage: FORM STRENGTH: 4 MG, FREQUENCY TEXT: 08.00, 17.00
  16. LEVOTHYROXINE [Concomitant]
     Active Substance: LEVOTHYROXINE\LEVOTHYROXINE SODIUM
     Indication: Product used for unknown indication
     Dosage: FORM STRENGTH: 75MICROGRAM, FREQUENCY TEXT: IN THE MORNING

REACTIONS (1)
  - Euthanasia [Fatal]

NARRATIVE: CASE EVENT DATE: 20240113
